FAERS Safety Report 24217112 (Version 2)
Quarter: 2025Q3

REPORT INFORMATION
  Report Type: Spontaneous
  Country: KR (occurrence: KR)
  Receive Date: 20240816
  Receipt Date: 20250721
  Transmission Date: 20251021
  Serious: Yes (Disabling)
  Sender: MYLAN
  Company Number: KR-MYLANLABS-2024M1074959

PATIENT
  Sex: Female

DRUGS (40)
  1. LYRICA [Suspect]
     Active Substance: PREGABALIN
     Indication: Trigeminal neuralgia
     Dosage: 1 DOSAGE FORM, BID
     Route: 065
     Dates: start: 20221020
  2. LYRICA [Suspect]
     Active Substance: PREGABALIN
     Dosage: 1 DOSAGE FORM, BID
     Dates: start: 20221020
  3. LYRICA [Suspect]
     Active Substance: PREGABALIN
     Dosage: 1 DOSAGE FORM, BID
     Dates: start: 20221020
  4. LYRICA [Suspect]
     Active Substance: PREGABALIN
     Dosage: 1 DOSAGE FORM, BID
     Route: 065
     Dates: start: 20221020
  5. LYRICA [Suspect]
     Active Substance: PREGABALIN
     Route: 065
  6. LYRICA [Suspect]
     Active Substance: PREGABALIN
  7. LYRICA [Suspect]
     Active Substance: PREGABALIN
  8. LYRICA [Suspect]
     Active Substance: PREGABALIN
     Route: 065
  9. LYRICA [Suspect]
     Active Substance: PREGABALIN
     Indication: Trigeminal neuralgia
     Dosage: 1 DOSAGE FORM, TID
     Dates: start: 20220811
  10. LYRICA [Suspect]
     Active Substance: PREGABALIN
     Dosage: 1 DOSAGE FORM, TID
     Dates: start: 20220811
  11. LYRICA [Suspect]
     Active Substance: PREGABALIN
     Dosage: 1 DOSAGE FORM, TID
     Route: 065
     Dates: start: 20220811
  12. LYRICA [Suspect]
     Active Substance: PREGABALIN
     Dosage: 1 DOSAGE FORM, TID
     Route: 065
     Dates: start: 20220811
  13. LYRICA [Suspect]
     Active Substance: PREGABALIN
  14. LYRICA [Suspect]
     Active Substance: PREGABALIN
  15. LYRICA [Suspect]
     Active Substance: PREGABALIN
     Route: 065
  16. LYRICA [Suspect]
     Active Substance: PREGABALIN
     Route: 065
  17. PREGABALIN [Suspect]
     Active Substance: PREGABALIN
     Indication: Trigeminal neuralgia
     Dosage: 1 DOSAGE FORM, TID
     Route: 065
     Dates: start: 20220811
  18. PREGABALIN [Suspect]
     Active Substance: PREGABALIN
     Dosage: 1 DOSAGE FORM, TID
     Dates: start: 20220811
  19. PREGABALIN [Suspect]
     Active Substance: PREGABALIN
     Dosage: 1 DOSAGE FORM, TID
     Dates: start: 20220811
  20. PREGABALIN [Suspect]
     Active Substance: PREGABALIN
     Dosage: 1 DOSAGE FORM, TID
     Route: 065
     Dates: start: 20220811
  21. PREGABALIN [Suspect]
     Active Substance: PREGABALIN
     Dosage: 1 DOSAGE FORM, QD
     Route: 065
     Dates: start: 20221020
  22. PREGABALIN [Suspect]
     Active Substance: PREGABALIN
     Dosage: 1 DOSAGE FORM, QD
     Dates: start: 20221020
  23. PREGABALIN [Suspect]
     Active Substance: PREGABALIN
     Dosage: 1 DOSAGE FORM, QD
     Dates: start: 20221020
  24. PREGABALIN [Suspect]
     Active Substance: PREGABALIN
     Dosage: 1 DOSAGE FORM, QD
     Route: 065
     Dates: start: 20221020
  25. OXCARBAZEPINE [Concomitant]
     Active Substance: OXCARBAZEPINE
     Dosage: 1 DOSAGE FORM, TID
     Dates: start: 20221020
  26. OXCARBAZEPINE [Concomitant]
     Active Substance: OXCARBAZEPINE
     Dosage: 1 DOSAGE FORM, TID
     Route: 065
     Dates: start: 20221020
  27. OXCARBAZEPINE [Concomitant]
     Active Substance: OXCARBAZEPINE
     Dosage: 1 DOSAGE FORM, TID
     Route: 065
     Dates: start: 20221020
  28. OXCARBAZEPINE [Concomitant]
     Active Substance: OXCARBAZEPINE
     Dosage: 1 DOSAGE FORM, TID
     Dates: start: 20221020
  29. TRAMADOL HYDROCHLORIDE [Concomitant]
     Active Substance: TRAMADOL HYDROCHLORIDE
     Dosage: 1 DOSAGE FORM, BID
     Dates: start: 20221006
  30. TRAMADOL HYDROCHLORIDE [Concomitant]
     Active Substance: TRAMADOL HYDROCHLORIDE
     Dosage: 1 DOSAGE FORM, BID
     Route: 065
     Dates: start: 20221006
  31. TRAMADOL HYDROCHLORIDE [Concomitant]
     Active Substance: TRAMADOL HYDROCHLORIDE
     Dosage: 1 DOSAGE FORM, BID
     Route: 065
     Dates: start: 20221006
  32. TRAMADOL HYDROCHLORIDE [Concomitant]
     Active Substance: TRAMADOL HYDROCHLORIDE
     Dosage: 1 DOSAGE FORM, BID
     Dates: start: 20221006
  33. S-Amlodipine besylate [Concomitant]
     Dosage: 1 DOSAGE FORM, QD
     Dates: start: 20190801
  34. S-Amlodipine besylate [Concomitant]
     Dosage: 1 DOSAGE FORM, QD
     Route: 065
     Dates: start: 20190801
  35. S-Amlodipine besylate [Concomitant]
     Dosage: 1 DOSAGE FORM, QD
     Route: 065
     Dates: start: 20190801
  36. S-Amlodipine besylate [Concomitant]
     Dosage: 1 DOSAGE FORM, QD
     Dates: start: 20190801
  37. Olmesartan;Rosuvastatin [Concomitant]
     Dosage: 1 DOSAGE FORM, QD
     Dates: start: 20161201
  38. Olmesartan;Rosuvastatin [Concomitant]
     Dosage: 1 DOSAGE FORM, QD
     Route: 065
     Dates: start: 20161201
  39. Olmesartan;Rosuvastatin [Concomitant]
     Dosage: 1 DOSAGE FORM, QD
     Route: 065
     Dates: start: 20161201
  40. Olmesartan;Rosuvastatin [Concomitant]
     Dosage: 1 DOSAGE FORM, QD
     Dates: start: 20161201

REACTIONS (1)
  - Sinus bradycardia [Recovering/Resolving]

NARRATIVE: CASE EVENT DATE: 20221027
